FAERS Safety Report 5213178-7 (Version None)
Quarter: 2007Q1

REPORT INFORMATION
  Report Type: 
  Country: None (occurrence: None)
  Receive Date: 20070119
  Receipt Date: 20070115
  Transmission Date: 20070707
  Serious: Yes (Other)
  Sender: FDA-Public Use
  Company Number: FR-GLAXOSMITHKLINE-B0442513A

PATIENT
  Age: 33 Year
  Sex: Female
  Weight: 28 kg

DRUGS (4)
  1. SEREVENT [Suspect]
     Indication: DRUG USE FOR UNKNOWN INDICATION
     Route: 050
     Dates: start: 20060926
  2. BRICANYL [Concomitant]
  3. OXEOL [Concomitant]
  4. BECLONE [Concomitant]

REACTIONS (2)
  - ASTHMATIC CRISIS [None]
  - DRUG INTOLERANCE [None]
